FAERS Safety Report 20236354 (Version 2)
Quarter: 2022Q1

REPORT INFORMATION
  Report Type: Report from Study
  Country: IE (occurrence: IE)
  Receive Date: 20211228
  Receipt Date: 20220118
  Transmission Date: 20220424
  Serious: Yes (Life-Threatening, Hospitalization)
  Sender: FDA-Public Use
  Company Number: IE-NOVARTISPH-NVSC2021IE294633

PATIENT
  Age: 7 Year
  Sex: Male
  Weight: 19 kg

DRUGS (3)
  1. ZYKADIA [Suspect]
     Active Substance: CERITINIB
     Indication: Glioblastoma multiforme
     Dosage: 300 MG, QD
     Route: 065
     Dates: start: 20161014, end: 20211123
  2. ONDANSETRON [Concomitant]
     Active Substance: ONDANSETRON
     Indication: Vomiting
     Dosage: 4 MG (SUSPENSION)
     Route: 065
     Dates: start: 2015
  3. CYCLIZINE [Concomitant]
     Active Substance: CYCLIZINE
     Indication: Vomiting
     Dosage: 15 MG (SUSPENSION)
     Route: 065
     Dates: start: 2015

REACTIONS (8)
  - Acute kidney injury [Recovered/Resolved]
  - Acute hepatic failure [Recovered/Resolved]
  - Hypoglycaemic seizure [Unknown]
  - Hepatic encephalopathy [Unknown]
  - Coagulopathy [Unknown]
  - Hypertension [Unknown]
  - Parainfluenzae virus infection [Unknown]
  - Diarrhoea [Unknown]

NARRATIVE: CASE EVENT DATE: 20211123
